FAERS Safety Report 13271159 (Version 2)
Quarter: 2017Q2

REPORT INFORMATION
  Report Type: Report from Study
  Country: CA (occurrence: CA)
  Receive Date: 20170226
  Receipt Date: 20170607
  Transmission Date: 20170830
  Serious: Yes (Other)
  Sender: FDA-Public Use
  Company Number: PHHY2016CA174332

PATIENT
  Age: 30 Year
  Sex: Female

DRUGS (11)
  1. COSENTYX [Suspect]
     Active Substance: SECUKINUMAB
     Dosage: 150 MG, QMO
     Route: 058
     Dates: start: 20170412
  2. CYMBALTA [Concomitant]
     Active Substance: DULOXETINE HYDROCHLORIDE
     Indication: PRODUCT USED FOR UNKNOWN INDICATION
     Route: 065
  3. COSENTYX [Suspect]
     Active Substance: SECUKINUMAB
     Dosage: 150 MG, QMO
     Route: 058
     Dates: start: 20170130
  4. ENBREL [Concomitant]
     Active Substance: ETANERCEPT
     Indication: PRODUCT USED FOR UNKNOWN INDICATION
     Route: 065
  5. CIMZIA [Concomitant]
     Active Substance: CERTOLIZUMAB PEGOL
     Indication: PRODUCT USED FOR UNKNOWN INDICATION
     Route: 065
  6. COSENTYX [Suspect]
     Active Substance: SECUKINUMAB
     Indication: ANKYLOSING SPONDYLITIS
     Dosage: 150 MG, QW
     Route: 058
     Dates: start: 20161208, end: 20170123
  7. LYRICA [Concomitant]
     Active Substance: PREGABALIN
     Indication: PRODUCT USED FOR UNKNOWN INDICATION
     Route: 065
  8. CORTISONE [Concomitant]
     Active Substance: CORTISONE\HYDROCORTISONE
     Indication: PRODUCT USED FOR UNKNOWN INDICATION
     Dosage: CORTISONE SHOTS
     Route: 065
  9. PREGABALIN. [Concomitant]
     Active Substance: PREGABALIN
     Indication: PRODUCT USED FOR UNKNOWN INDICATION
     Route: 065
  10. HYDROMORPHONE [Concomitant]
     Active Substance: HYDROMORPHONE
     Indication: PRODUCT USED FOR UNKNOWN INDICATION
     Route: 065
  11. NAPROXEN. [Concomitant]
     Active Substance: NAPROXEN
     Indication: PRODUCT USED FOR UNKNOWN INDICATION
     Route: 065

REACTIONS (10)
  - Nausea [Unknown]
  - Abdominal discomfort [Recovering/Resolving]
  - Abdominal mass [Unknown]
  - Spigelian hernia [Unknown]
  - Malaise [Unknown]
  - Headache [Unknown]
  - Lymphadenitis [Recovering/Resolving]
  - Abdominal pain [Recovering/Resolving]
  - Intestinal strangulation [Unknown]
  - Viral upper respiratory tract infection [Recovered/Resolved]

NARRATIVE: CASE EVENT DATE: 20161208
